FAERS Safety Report 17541668 (Version 1)
Quarter: 2020Q1

REPORT INFORMATION
  Report Type: Spontaneous
  Country: CA (occurrence: CA)
  Receive Date: 20200313
  Receipt Date: 20200313
  Transmission Date: 20200409
  Serious: Yes (Other)
  Sender: FDA-Public Use
  Company Number: NVSC2020CA068591

PATIENT
  Age: 67 Year
  Sex: Male

DRUGS (14)
  1. AVAPRO [Suspect]
     Active Substance: IRBESARTAN
     Indication: BLOOD PRESSURE ABNORMAL
     Dosage: UNK UNK, UNKNOWN
     Route: 065
  2. DESOXIMETASONE. [Concomitant]
     Active Substance: DESOXIMETASONE
     Indication: PRODUCT USED FOR UNKNOWN INDICATION
     Dosage: UNK UNK, UNKNOWN
     Route: 065
  3. XARELTO [Concomitant]
     Active Substance: RIVAROXABAN
     Indication: ANTICOAGULANT THERAPY
     Dosage: UNK UNK, UNKNOWN
     Route: 065
  4. REMICADE [Concomitant]
     Active Substance: INFLIXIMAB
     Indication: PRODUCT USED FOR UNKNOWN INDICATION
     Dosage: UNK UNK, UNKNOWN
     Route: 042
  5. COSENTYX [Suspect]
     Active Substance: SECUKINUMAB
     Dosage: 150 MG, QMO
     Route: 058
  6. VENTOLIN [Concomitant]
     Active Substance: ALBUTEROL SULFATE
     Indication: PRODUCT USED FOR UNKNOWN INDICATION
     Dosage: UNK UNK, UNKNOWN
     Route: 065
  7. COSENTYX [Suspect]
     Active Substance: SECUKINUMAB
     Dosage: 150 MG, Q2W
     Route: 058
  8. METHOTREXATE SODIUM. [Suspect]
     Active Substance: METHOTREXATE SODIUM
     Indication: PRODUCT USED FOR UNKNOWN INDICATION
     Dosage: UNK UNK, UNKNOWN
     Route: 065
  9. METOPROLOL TARTRATE. [Suspect]
     Active Substance: METOPROLOL TARTRATE
     Indication: PRODUCT USED FOR UNKNOWN INDICATION
     Dosage: 20 MG, BID
     Route: 065
  10. BUTALBITAL AND ACETAMINOPHEN [Suspect]
     Active Substance: ACETAMINOPHEN\BUTALBITAL
     Indication: ARTHRALGIA
     Route: 065
  11. CIMZIA [Concomitant]
     Active Substance: CERTOLIZUMAB PEGOL
     Indication: PRODUCT USED FOR UNKNOWN INDICATION
     Dosage: UNK UNK, UNKNOWN
     Route: 058
  12. SIMPONI [Concomitant]
     Active Substance: GOLIMUMAB
     Indication: PRODUCT USED FOR UNKNOWN INDICATION
     Dosage: UNK UNK, UNKNOWN
     Route: 058
  13. DIOSMIN [Suspect]
     Active Substance: DIOSMIN
     Indication: POOR PERIPHERAL CIRCULATION
     Dosage: UNK UNK, UNKNOWN
     Route: 065
  14. ACETAMINOPHEN. [Concomitant]
     Active Substance: ACETAMINOPHEN
     Indication: PRODUCT USED FOR UNKNOWN INDICATION
     Dosage: UNK UNK, UNKNOWN
     Route: 065

REACTIONS (36)
  - Arthropathy [Recovered/Resolved]
  - Fatigue [Recovered/Resolved]
  - Joint swelling [Recovered/Resolved]
  - Paraesthesia [Recovered/Resolved]
  - Pyrexia [Recovered/Resolved]
  - Wound [Recovered/Resolved]
  - Injection site erythema [Recovered/Resolved]
  - Scratch [Recovered/Resolved]
  - Injection site bruising [Recovered/Resolved]
  - Malaise [Recovered/Resolved]
  - Pain [Recovered/Resolved]
  - Contusion [Recovered/Resolved]
  - Non-cardiac chest pain [Recovered/Resolved]
  - Arthralgia [Recovered/Resolved]
  - Influenza [Recovered/Resolved]
  - Skin abrasion [Recovered/Resolved]
  - Abdominal pain upper [Recovered/Resolved]
  - Dizziness [Recovered/Resolved]
  - Drug ineffective [Recovered/Resolved]
  - Bronchitis [Recovered/Resolved]
  - Dyspnoea [Recovered/Resolved]
  - Feeling hot [Recovered/Resolved]
  - Increased appetite [Recovered/Resolved]
  - Peripheral swelling [Recovered/Resolved]
  - Productive cough [Recovered/Resolved]
  - Hypotension [Recovered/Resolved]
  - Ankylosing spondylitis [Recovered/Resolved]
  - Erythema [Recovered/Resolved]
  - Inflammation [Recovered/Resolved]
  - Lower respiratory tract congestion [Recovered/Resolved]
  - Pain in extremity [Recovered/Resolved]
  - Ear pain [Recovered/Resolved]
  - Eczema [Recovered/Resolved]
  - Scab [Recovered/Resolved]
  - Skin lesion [Recovered/Resolved]
  - Sleep disorder [Recovered/Resolved]
